FAERS Safety Report 16177588 (Version 2)
Quarter: 2019Q2

REPORT INFORMATION
  Report Type: Report from Study
  Country: CA (occurrence: CA)
  Receive Date: 20190410
  Receipt Date: 20190502
  Transmission Date: 20190711
  Serious: Yes (Other)
  Sender: FDA-Public Use
  Company Number: CA-REGENERON PHARMACEUTICALS, INC.-2019-25122

PATIENT

DRUGS (2)
  1. EYLEA [Suspect]
     Active Substance: AFLIBERCEPT
     Dosage: OS - LEFT EYE; LAST DOSE TAKEN
     Dates: start: 201904, end: 201904
  2. EYLEA [Suspect]
     Active Substance: AFLIBERCEPT
     Indication: DIABETIC RETINAL OEDEMA
     Dosage: UNK
     Dates: start: 20170224

REACTIONS (6)
  - Eye swelling [Not Recovered/Not Resolved]
  - Blindness [Recovering/Resolving]
  - Eye haemorrhage [Not Recovered/Not Resolved]
  - Visual impairment [Recovering/Resolving]
  - Eye disorder [Not Recovered/Not Resolved]
  - Vision blurred [Recovering/Resolving]

NARRATIVE: CASE EVENT DATE: 20170225
